FAERS Safety Report 24652617 (Version 2)
Quarter: 2024Q4

REPORT INFORMATION
  Report Type: Spontaneous
  Country: US (occurrence: US)
  Receive Date: 20241122
  Receipt Date: 20241226
  Transmission Date: 20250115
  Serious: No
  Sender: BAYER HEALTHCARE PHARMACEUTICALS INC.
  Company Number: US-BAYER-2024A163982

PATIENT
  Age: 17 Year
  Sex: Male

DRUGS (2)
  1. KOVALTRY [Suspect]
     Active Substance: ANTIHEMOPHILIC FACTOR, HUMAN RECOMBINANT
     Dosage: KOVALTRY 285/2297 UNITS: INFUSE 2800/4200 UNITS (+/-10%) EVERY 12 TO
     Route: 042
  2. KOVALTRY [Suspect]
     Active Substance: ANTIHEMOPHILIC FACTOR, HUMAN RECOMBINANT
     Dosage: KOVALTRY 2166 UNITS: 2900 UNITS/4350 UNITS, INFUSION
     Route: 042

REACTIONS (2)
  - Tooth disorder [None]
  - Tooth disorder [None]

NARRATIVE: CASE EVENT DATE: 20241104
